FAERS Safety Report 8267904-3 (Version None)
Quarter: 2012Q2

REPORT INFORMATION
  Report Type: 
  Country: None (occurrence: None)
  Receive Date: 20120409
  Receipt Date: 20120330
  Transmission Date: 20120825
  Serious: Yes (Hospitalization, Other)
  Sender: FDA-Public Use
  Company Number: BR-BRISTOL-MYERS SQUIBB COMPANY-16307803

PATIENT
  Age: 45 Year
  Sex: Female

DRUGS (3)
  1. ORENCIA [Suspect]
     Indication: RHEUMATOID ARTHRITIS
     Dosage: NO OF INF:4 THERAPY DT:05AUG2011,12SEP2011,24OCT2011,4JAN12,3FEB12,13MAR12,APR12. INTER ON NOV11
     Route: 042
     Dates: start: 20110805
  2. METHOTREXATE [Concomitant]
  3. METICORTEN [Concomitant]

REACTIONS (5)
  - PAIN IN EXTREMITY [None]
  - MENSTRUATION IRREGULAR [None]
  - CHOLELITHIASIS [None]
  - ARTHRALGIA [None]
  - GAIT DISTURBANCE [None]
